FAERS Safety Report 4483603-8 (Version None)
Quarter: 2004Q4

REPORT INFORMATION
  Report Type: 
  Country: None (occurrence: None)
  Receive Date: 20041021
  Receipt Date: 20041006
  Transmission Date: 20050328
  Serious: Yes (Death)
  Sender: FDA-Public Use
  Company Number: 2004AL000604

PATIENT
  Age: 40 Year

DRUGS (4)
  1. CHILDREN'S APAP ELIXIR (ACETAMINOPHEN) (ALPHARMA) [Suspect]
  2. INFANTS' APAP DROPS (ACETAMINOPHEN) (ALPHARMA) [Suspect]
  3. CARBURETOR CLEANER (METHANOL) [Suspect]
     Dosage: PO
     Route: 048
  4. BRAKE CLEANER [Suspect]
     Dosage: PO
     Route: 048

REACTIONS (1)
  - INTENTIONAL MISUSE [None]
